FAERS Safety Report 11764969 (Version 1)
Quarter: 2015Q4

REPORT INFORMATION
  Report Type: Spontaneous
  Country: US (occurrence: US)
  Receive Date: 20151120
  Receipt Date: 20151120
  Transmission Date: 20160304
  Serious: No
  Sender: FDA-Public Use
  Company Number: US-ELI_LILLY_AND_COMPANY-US201309006271

PATIENT
  Sex: Female

DRUGS (1)
  1. FORTEO [Suspect]
     Active Substance: TERIPARATIDE
     Indication: BONE DISORDER
     Dosage: UNK, QD
     Dates: start: 20130912

REACTIONS (6)
  - Flatulence [Unknown]
  - Nervousness [Unknown]
  - Nausea [Unknown]
  - Gastrointestinal sounds abnormal [Unknown]
  - Sleep disorder due to general medical condition, insomnia type [Unknown]
  - Dysgeusia [Unknown]

NARRATIVE: CASE EVENT DATE: 201209
